FAERS Safety Report 7242826-5 (Version None)
Quarter: 2011Q1

REPORT INFORMATION
  Report Type: 
  Country: None (occurrence: None)
  Receive Date: 20110125
  Receipt Date: 20110120
  Transmission Date: 20110831
  Serious: Yes (Death)
  Sender: FDA-Public Use
  Company Number: PHFR2010GB05958

PATIENT
  Sex: Male

DRUGS (7)
  1. EXELON [Concomitant]
     Dosage: 9.5 MG DAILY
  2. CLOZARIL [Suspect]
     Indication: HALLUCINATION
  3. CITALOPRAM HYDROBROMIDE [Concomitant]
     Dosage: 30 MG, UNK
     Route: 048
  4. CLOZARIL [Suspect]
     Indication: SCHIZOPHRENIA
     Dosage: 50 MG DAILY
     Route: 048
     Dates: start: 20100319
  5. LORAZEPAM [Concomitant]
     Dosage: 0.5 MG, UNK
     Route: 048
  6. CLONAZEPAM [Concomitant]
     Dosage: 500 MG, UNK
     Route: 048
  7. CLOZARIL [Suspect]
     Indication: DEMENTIA WITH LEWY BODIES

REACTIONS (1)
  - PARKINSON'S DISEASE [None]
